FAERS Safety Report 25650968 (Version 1)
Quarter: 2025Q3

REPORT INFORMATION
  Report Type: Spontaneous
  Country: GB (occurrence: GB)
  Receive Date: 20250806
  Receipt Date: 20250806
  Transmission Date: 20251021
  Serious: Yes (Other)
  Sender: ELI LILLY AND COMPANY
  Company Number: GB-ELI_LILLY_AND_COMPANY-GB202507024210

PATIENT
  Sex: Female

DRUGS (1)
  1. MIRIKIZUMAB [Suspect]
     Active Substance: MIRIKIZUMAB
     Indication: Colitis ulcerative
     Route: 058
     Dates: start: 202411

REACTIONS (1)
  - Maternal exposure during pregnancy [Not Recovered/Not Resolved]
